FAERS Safety Report 5926770-9 (Version None)
Quarter: 2008Q4

REPORT INFORMATION
  Report Type: 
  Country: None (occurrence: None)
  Receive Date: 20081022
  Receipt Date: 20081014
  Transmission Date: 20090506
  Serious: Yes (Hospitalization)
  Sender: FDA-Public Use
  Company Number: US-GENENTECH-268130

PATIENT
  Sex: Female

DRUGS (3)
  1. BEVACIZUMAB [Suspect]
     Indication: BREAST CANCER METASTATIC
     Dosage: 740 MG, UNK
     Route: 042
     Dates: start: 20080326
  2. IXABEPILONE [Suspect]
     Indication: BREAST CANCER METASTATIC
     Dosage: 30 MG, UNK
     Route: 042
     Dates: start: 20080326
  3. MORPHINE SULFATE INJ [Concomitant]
     Indication: DRUG USE FOR UNKNOWN INDICATION
     Dosage: UNK TABLET, UNK
     Dates: start: 20080729

REACTIONS (1)
  - COMPLICATED MIGRAINE [None]
